FAERS Safety Report 5546102-8 (Version None)
Quarter: 2007Q4

REPORT INFORMATION
  Report Type: 
  Country: None (occurrence: None)
  Receive Date: 20071211
  Receipt Date: 20071012
  Transmission Date: 20080405
  Serious: No
  Sender: FDA-Public Use
  Company Number: US-BRISTOL-MYERS SQUIBB COMPANY-13940457

PATIENT
  Age: 48 Year
  Sex: Female
  Weight: 52 kg

DRUGS (3)
  1. EMSAM [Suspect]
     Indication: DEPRESSION
     Route: 062
     Dates: start: 20061201
  2. EMSAM [Suspect]
     Indication: PANIC ATTACK
     Route: 062
     Dates: start: 20061201
  3. ALPRAZOLAM [Concomitant]

REACTIONS (2)
  - APPLICATION SITE RASH [None]
  - SKIN DISCOLOURATION [None]
